FAERS Safety Report 7374637-4 (Version None)
Quarter: 2011Q1

REPORT INFORMATION
  Report Type: 
  Country: None (occurrence: None)
  Receive Date: 20110325
  Receipt Date: 20100603
  Transmission Date: 20110831
  Serious: No
  Sender: FDA-Public Use
  Company Number: US-MYLANLABS-2010S1009870

PATIENT
  Age: 40 Year
  Sex: Male
  Weight: 102.97 kg

DRUGS (4)
  1. FENTANYL-100 [Suspect]
     Indication: BACK PAIN
     Dosage: CHANGES PATCHES Q3D
     Route: 062
     Dates: start: 20081201
  2. METOPROLOL [Concomitant]
     Indication: BLOOD PRESSURE INCREASED
  3. SOMA [Concomitant]
  4. PERCOCET [Concomitant]
     Indication: BREAKTHROUGH PAIN

REACTIONS (3)
  - DRUG EFFECT DECREASED [None]
  - BACK PAIN [None]
  - DRUG WITHDRAWAL SYNDROME [None]
